FAERS Safety Report 24525575 (Version 3)
Quarter: 2025Q2

REPORT INFORMATION
  Report Type: Spontaneous
  Country: US (occurrence: US)
  Receive Date: 20241020
  Receipt Date: 20250522
  Transmission Date: 20250717
  Serious: No
  Sender: SANOFI AVENTIS
  Company Number: US-SA-2024SA300943

PATIENT
  Age: 63 Year
  Sex: Female
  Weight: 73.18 kg

DRUGS (2)
  1. DUPIXENT [Suspect]
     Active Substance: DUPILUMAB
     Indication: Dermatitis atopic
     Dosage: 300 MG, QOW
     Route: 058
  2. REPATHA [Suspect]
     Active Substance: EVOLOCUMAB

REACTIONS (3)
  - Illness [Unknown]
  - Epistaxis [Unknown]
  - Injection site bruising [Unknown]
